FAERS Safety Report 23297294 (Version 3)
Quarter: 2024Q1

REPORT INFORMATION
  Report Type: Spontaneous
  Country: PL (occurrence: PL)
  Receive Date: 20231214
  Receipt Date: 20240105
  Transmission Date: 20240410
  Serious: Yes (Other)
  Sender: FDA-Public Use
  Company Number: PL-LESVI-2023005805

PATIENT
  Age: 71 Year
  Sex: Male

DRUGS (18)
  1. CARBAMAZEPINE [Suspect]
     Active Substance: CARBAMAZEPINE
     Indication: Trigeminal neuralgia
     Dosage: UNK
     Route: 065
  2. CARBAMAZEPINE [Suspect]
     Active Substance: CARBAMAZEPINE
     Indication: Neurovascular conflict
  3. PREGABALIN [Suspect]
     Active Substance: PREGABALIN
     Indication: Eagle^s syndrome
     Dosage: 150 MG, QD (AFTER A WEEK 150 MG PER NIGHT)
     Route: 065
  4. PREGABALIN [Suspect]
     Active Substance: PREGABALIN
     Dosage: 75MG/DAY 1 TBL. PER NIGHT,
     Route: 065
  5. GABAPENTIN [Suspect]
     Active Substance: GABAPENTIN
     Indication: Trigeminal neuralgia
     Dosage: UNK
     Route: 065
  6. GABAPENTIN [Suspect]
     Active Substance: GABAPENTIN
     Indication: Neurovascular conflict
     Dosage: UNK
     Route: 065
  7. GABAPENTIN [Suspect]
     Active Substance: GABAPENTIN
     Indication: Product used for unknown indication
     Dosage: UNK
     Route: 065
  8. GABAPENTIN [Suspect]
     Active Substance: GABAPENTIN
     Indication: Trigeminal neuralgia
  9. BACLOFEN [Suspect]
     Active Substance: BACLOFEN
     Indication: Eagle^s syndrome
     Dosage: 10 MG, UNKNOWN, AFTER A WEEK 1 TBL. PER NIGHT
     Route: 065
  10. BACLOFEN [Suspect]
     Active Substance: BACLOFEN
     Indication: Product used for unknown indication
     Dosage: 10 MG, 2 TBL. IN THE EVENING, WAS MAINTAINED
     Route: 065
  11. BACLOFEN [Suspect]
     Active Substance: BACLOFEN
     Dosage: 10 MG 1/2 TBL. PER NIGHT,
     Route: 065
  12. BACLOFEN [Suspect]
     Active Substance: BACLOFEN
     Dosage: 5 MG, UNKNOWN
     Route: 065
  13. BACLOFEN [Suspect]
     Active Substance: BACLOFEN
     Dosage: 5 MILLIGRAM, UNK
     Route: 065
  14. NAPROXEN [Suspect]
     Active Substance: NAPROXEN
     Indication: Eagle^s syndrome
     Dosage: 250 MG PER NIGHT
     Route: 065
  15. NAPROXEN [Suspect]
     Active Substance: NAPROXEN
     Indication: Product used for unknown indication
     Dosage: 250 MILLIGRAM, UNK
     Route: 065
  16. ACETAMINOPHEN\TRAMADOL [Concomitant]
     Active Substance: ACETAMINOPHEN\TRAMADOL
     Indication: Pain
     Dosage: 2-3 TIMES A WEEK
     Route: 065
  17. LIDOCAINE [Concomitant]
     Active Substance: LIDOCAINE
     Indication: Coccydynia
     Dosage: 5 MG
     Route: 065
  18. DEXAMETHASONE [Concomitant]
     Active Substance: DEXAMETHASONE
     Indication: Coccydynia
     Dosage: 1 MG
     Route: 065

REACTIONS (4)
  - Balance disorder [Unknown]
  - Disturbance in attention [Unknown]
  - Confusional state [Unknown]
  - Drug ineffective [Unknown]
